FAERS Safety Report 5486589-2 (Version None)
Quarter: 2007Q4

REPORT INFORMATION
  Report Type: 
  Country: None (occurrence: None)
  Receive Date: 20071012
  Receipt Date: 20070927
  Transmission Date: 20080405
  Serious: Yes (Hospitalization)
  Sender: FDA-Public Use
  Company Number: TRP_00992_2007

PATIENT
  Sex: Male
  Weight: 82.9 kg

DRUGS (9)
  1. RIBASPHERE [Suspect]
     Indication: DRUG USE FOR UNKNOWN INDICATION
     Dosage: (1200 MG QD ORAL)
     Route: 048
     Dates: start: 20070810, end: 20070831
  2. PEG-INTRON [Suspect]
     Indication: DRUG USE FOR UNKNOWN INDICATION
     Dosage: (120 UG 1X/WEEK SUBCUTANEOUS)
     Route: 058
     Dates: start: 20070810, end: 20070817
  3. NEURONTIN [Concomitant]
  4. CYCLOPENZAPRINE [Concomitant]
  5. NORCO [Concomitant]
  6. SULAR [Concomitant]
  7. CYMBALTA [Concomitant]
  8. NIFEDIPINE [Concomitant]
  9. LOVENOX [Concomitant]

REACTIONS (7)
  - ANAEMIA [None]
  - CORONARY ARTERY DISEASE [None]
  - ELECTROCARDIOGRAM ST SEGMENT ABNORMAL [None]
  - ELECTROCARDIOGRAM T WAVE INVERSION [None]
  - LEFT VENTRICULAR HYPERTROPHY [None]
  - SINUS TACHYCARDIA [None]
  - SYNCOPE [None]
